FAERS Safety Report 7726650-2 (Version None)
Quarter: 2011Q3

REPORT INFORMATION
  Report Type: 
  Country: None (occurrence: None)
  Receive Date: 20110902
  Receipt Date: 20110823
  Transmission Date: 20111222
  Serious: No
  Sender: FDA-Public Use
  Company Number: US-B.I. PHARMACEUTICALS,INC./RIDGEFIELD-2011-BP-20677BP

PATIENT
  Sex: Male

DRUGS (7)
  1. POTASSIUM [Concomitant]
     Indication: BLOOD POTASSIUM DECREASED
     Dates: start: 20000101
  2. METOPROLOL [Concomitant]
     Indication: HYPERTENSION
     Dates: start: 20000101
  3. SIMVASTATIN [Concomitant]
     Indication: BLOOD CHOLESTEROL INCREASED
     Dates: start: 20000101
  4. SPIRIVA [Suspect]
     Indication: CHRONIC OBSTRUCTIVE PULMONARY DISEASE
     Dosage: 18 MCG
     Route: 055
     Dates: start: 20110701
  5. FUROSEMIDE [Concomitant]
     Indication: OEDEMA
     Dates: start: 20030101
  6. LOSARTAN [Concomitant]
     Indication: HYPERTENSION
     Dates: start: 20050101
  7. ALBUTEROL SULFATE AUTOHALER [Concomitant]
     Indication: CHRONIC OBSTRUCTIVE PULMONARY DISEASE
     Dates: start: 20070101

REACTIONS (2)
  - MUSCLE SPASMS [None]
  - COUGH [None]
